APPROVED DRUG PRODUCT: CHOLESTYRAMINE LIGHT
Active Ingredient: CHOLESTYRAMINE
Strength: EQ 4GM RESIN/SCOOPFUL
Dosage Form/Route: POWDER;ORAL
Application: A202902 | Product #001 | TE Code: AB
Applicant: ZYDUS PHARMACEUTICALS USA INC
Approved: Apr 25, 2017 | RLD: No | RS: No | Type: RX